FAERS Safety Report 19895142 (Version 1)
Quarter: 2021Q3

REPORT INFORMATION
  Report Type: Spontaneous
  Country: US (occurrence: US)
  Receive Date: 20210929
  Receipt Date: 20210929
  Transmission Date: 20211014
  Serious: No
  Sender: FDA-Public Use
  Company Number: None

PATIENT
  Age: 64 Year
  Sex: Male
  Weight: 95.89 kg

DRUGS (1)
  1. TRAZODONE (TRAZODONE HCL 50MG TAB) [Suspect]
     Active Substance: TRAZODONE HYDROCHLORIDE
     Route: 048
     Dates: start: 20170518, end: 20170710

REACTIONS (5)
  - Blood loss anaemia [None]
  - Leukocytosis [None]
  - Oliguria [None]
  - Acute kidney injury [None]
  - Priapism [None]

NARRATIVE: CASE EVENT DATE: 20180206
